FAERS Safety Report 7878609-2 (Version None)
Quarter: 2011Q4

REPORT INFORMATION
  Report Type: 
  Country: None (occurrence: None)
  Receive Date: 20111101
  Receipt Date: 20111101
  Transmission Date: 20120403
  Serious: No
  Sender: FDA-Public Use
  Company Number: None

PATIENT
  Sex: Female
  Weight: 117.93 kg

DRUGS (5)
  1. CIPROFLOXACIN HCL [Suspect]
     Indication: ANAL ABSCESS
     Dosage: 500 MG
     Route: 048
  2. XYZAL [Concomitant]
  3. LEVOXL [Concomitant]
  4. SINGULAIR [Concomitant]
  5. LO LOESTRIN FE [Concomitant]

REACTIONS (3)
  - ARTHRALGIA [None]
  - PAIN [None]
  - TENDON PAIN [None]
